FAERS Safety Report 8438883 (Version 4)
Quarter: 2012Q4

REPORT INFORMATION
  Report Type: 
  Country: JP (occurrence: JP)
  Receive Date: 20120302
  Receipt Date: 20121129
  Transmission Date: 20130627
  Serious: Yes (Hospitalization)
  Sender: FDA-Public Use
  Company Number: JP-MSD-1202USA04299

PATIENT
  Age: 62 Year
  Sex: Female
  Weight: 45 kg

DRUGS (6)
  1. GASTER [Suspect]
     Indication: GASTROOESOPHAGEAL REFLUX DISEASE
     Dosage: 10 mg, bid
     Route: 048
     Dates: start: 20060301, end: 20120228
  2. PREDNISONE [Suspect]
     Indication: RHEUMATOID ARTHRITIS
     Dosage: 2.5 mg, bid
     Route: 048
     Dates: start: 20100621
  3. MOBIC [Suspect]
     Indication: RHEUMATOID ARTHRITIS
     Dosage: 10 mg, UID/QD
     Route: 048
     Dates: start: 20110906, end: 20120223
  4. ENBREL [Concomitant]
     Indication: RHEUMATOID ARTHRITIS
     Dates: start: 20101022
  5. SELBEX [Concomitant]
     Indication: GASTRITIS
     Dosage: UNK
     Route: 048
     Dates: start: 20110906, end: 20120223
  6. SELTOUCH [Concomitant]
     Indication: MYALGIA
     Dosage: UNK
     Dates: start: 20110406

REACTIONS (1)
  - Polymyositis [Not Recovered/Not Resolved]
